FAERS Safety Report 4960652-4 (Version None)
Quarter: 2006Q2

REPORT INFORMATION
  Report Type: 
  Country: None (occurrence: None)
  Receive Date: 20060403
  Receipt Date: 20051215
  Transmission Date: 20061013
  Serious: Yes (Hospitalization, Disabling)
  Sender: FDA-Public Use
  Company Number: US-MERCK-0512USA02569

PATIENT
  Age: 63 Year
  Sex: Female
  Weight: 68 kg

DRUGS (14)
  1. VIOXX [Suspect]
     Indication: ARTHRITIS
     Route: 048
     Dates: start: 20020628, end: 20040702
  2. PAROXETINE [Concomitant]
     Route: 065
  3. AMANTADINE HYDROCHLORIDE [Concomitant]
     Route: 065
  4. PROTONIX [Concomitant]
     Route: 065
  5. NORVASC [Concomitant]
     Route: 065
  6. HYDROCODONE HYDROCHLORIDE [Concomitant]
     Route: 065
  7. URISPAS [Concomitant]
     Route: 065
  8. VICODIN [Concomitant]
     Route: 065
  9. ADVIL [Concomitant]
     Indication: MONARTHRITIS
     Route: 065
  10. ADVIL [Concomitant]
     Route: 065
  11. ATIVAN [Concomitant]
     Route: 065
  12. ASPIRIN [Concomitant]
     Route: 048
  13. PLAVIX [Concomitant]
     Route: 065
  14. PEPCID [Concomitant]
     Route: 048

REACTIONS (10)
  - ABASIA [None]
  - AREFLEXIA [None]
  - BRAIN OEDEMA [None]
  - CARDIAC DISORDER [None]
  - CARDIAC PACEMAKER MALFUNCTION [None]
  - CEREBRAL INFARCTION [None]
  - CEREBROVASCULAR ACCIDENT [None]
  - CONVULSION [None]
  - GOUT [None]
  - HEMIPARESIS [None]
